FAERS Safety Report 12886856 (Version 4)
Quarter: 2017Q1

REPORT INFORMATION
  Report Type: Report from Study
  Country: US (occurrence: US)
  Receive Date: 20161026
  Receipt Date: 20170320
  Transmission Date: 20170428
  Serious: Yes (Hospitalization)
  Sender: FDA-Public Use
  Company Number: US-JNJFOC-20161018774

PATIENT
  Age: 66 Year
  Sex: Male
  Weight: 111.13 kg

DRUGS (2)
  1. INFLIXIMAB, RECOMBINANT [Suspect]
     Active Substance: INFLIXIMAB
     Indication: PSORIASIS
     Route: 042
     Dates: start: 200810, end: 201102
  2. ETANERCEPT [Concomitant]
     Active Substance: ETANERCEPT
     Route: 065
     Dates: start: 201202, end: 201504

REACTIONS (1)
  - Adenocarcinoma gastric [Recovering/Resolving]

NARRATIVE: CASE EVENT DATE: 20160724
